FAERS Safety Report 12936164 (Version 1)
Quarter: 2016Q4

REPORT INFORMATION
  Report Type: Spontaneous
  Country: US (occurrence: US)
  Receive Date: 20161111
  Receipt Date: 20161111
  Transmission Date: 20170207
  Serious: Yes (Disabling, Other)
  Sender: FDA-Public Use
  Company Number: None

PATIENT
  Age: 37 Year
  Sex: Female
  Weight: 64.4 kg

DRUGS (6)
  1. HEPRINE [Concomitant]
  2. AMLODIPINE [Concomitant]
     Active Substance: AMLODIPINE BESYLATE
  3. CLONIDINE. [Concomitant]
     Active Substance: CLONIDINE
  4. EPOGEN [Suspect]
     Active Substance: ERYTHROPOIETIN
     Indication: HAEMOGLOBIN
     Dosage: ?          OTHER ROUTE:INJECTED INTO THE DIALYSIS MACHINE.?
     Dates: start: 20130203
  5. HYDRALAZINE [Concomitant]
     Active Substance: HYDRALAZINE HYDROCHLORIDE
  6. RENVELA [Concomitant]
     Active Substance: SEVELAMER CARBONATE

REACTIONS (9)
  - Dysphagia [None]
  - Blood pressure inadequately controlled [None]
  - Pain [None]
  - Pain in extremity [None]
  - Dysstasia [None]
  - Mouth swelling [None]
  - Peripheral swelling [None]
  - Gait disturbance [None]
  - Swelling face [None]

NARRATIVE: CASE EVENT DATE: 20160111
